FAERS Safety Report 23212633 (Version 1)
Quarter: 2023Q4

REPORT INFORMATION
  Report Type: Spontaneous
  Country: US (occurrence: US)
  Receive Date: 20231121
  Receipt Date: 20231121
  Transmission Date: 20240109
  Serious: Yes (Other)
  Sender: FDA-Public Use
  Company Number: US-ENDO-CASE-0043629

PATIENT
  Sex: Female

DRUGS (7)
  1. TRAMADOL HYDROCHLORIDE [Suspect]
     Active Substance: TRAMADOL HYDROCHLORIDE
  2. ENDOCET [Suspect]
     Active Substance: ACETAMINOPHEN\OXYCODONE HYDROCHLORIDE
  3. PERCOCET [Suspect]
     Active Substance: ACETAMINOPHEN\OXYCODONE HYDROCHLORIDE
  4. ACETAMINOPHEN\OXYCODONE HYDROCHLORIDE [Suspect]
     Active Substance: ACETAMINOPHEN\OXYCODONE HYDROCHLORIDE
  5. OXYMORPHONE HYDROCHLORIDE [Suspect]
     Active Substance: OXYMORPHONE HYDROCHLORIDE
  6. FENTANYL CITRATE [Suspect]
     Active Substance: FENTANYL CITRATE
  7. ACETAMINOPHEN AND CODEINE [Suspect]
     Active Substance: ACETAMINOPHEN\CODEINE PHOSPHATE

REACTIONS (3)
  - Overdose [Unknown]
  - Dependence [Unknown]
  - Depression [Unknown]
